FAERS Safety Report 21760029 (Version 1)
Quarter: 2022Q4

REPORT INFORMATION
  Report Type: Spontaneous
  Country: US (occurrence: None)
  Receive Date: 20221220
  Receipt Date: 20221220
  Transmission Date: 20230112
  Serious: Yes (Hospitalization)
  Sender: FDA-Public Use
  Company Number: None

PATIENT
  Age: 47 Year
  Sex: Male

DRUGS (1)
  1. CAPECITABINE [Suspect]
     Active Substance: CAPECITABINE
     Dosage: 1500 MG BID ORAL?
     Route: 048

REACTIONS (7)
  - Therapy interrupted [None]
  - Dehydration [None]
  - Diarrhoea [None]
  - Neuropathy peripheral [None]
  - Skin exfoliation [None]
  - Flushing [None]
  - Taste disorder [None]

NARRATIVE: CASE EVENT DATE: 20221220
